FAERS Safety Report 4947234-5 (Version None)
Quarter: 2006Q1

REPORT INFORMATION
  Report Type: 
  Country: None (occurrence: None)
  Receive Date: 20060317
  Receipt Date: 20060307
  Transmission Date: 20060701
  Serious: Yes (Hospitalization)
  Sender: FDA-Public Use
  Company Number: 2006UW03817

PATIENT
  Age: 27724 Day
  Sex: Female
  Weight: 58.2 kg

DRUGS (6)
  1. CRESTOR [Suspect]
     Indication: BLOOD CHOLESTEROL
     Route: 048
     Dates: start: 20060203
  2. CALCIUM WITH MAGNESIUM/VITAMIN D [Concomitant]
     Indication: BONE DISORDER
     Dosage: CA-333MG; MG-167MG;VIT D-133IU
     Dates: start: 19960101
  3. VITAMIN D [Concomitant]
     Indication: BONE DISORDER
     Dates: start: 19960101
  4. COVERSYL [Concomitant]
     Indication: HYPERTENSION
     Dates: start: 20060103
  5. ASAPHEN [Concomitant]
     Indication: BLOOD DISORDER
     Dates: start: 20060103
  6. ACTONEL [Concomitant]
     Indication: OSTEOPOROSIS

REACTIONS (8)
  - ASTHENIA [None]
  - BLOOD PRESSURE INCREASED [None]
  - CONSTIPATION [None]
  - DYSPNOEA [None]
  - HEADACHE [None]
  - HYPERHIDROSIS [None]
  - PALPITATIONS [None]
  - TREMOR [None]
